FAERS Safety Report 23725574 (Version 1)
Quarter: 2024Q2

REPORT INFORMATION
  Report Type: Report from Study
  Country: DE (occurrence: DE)
  Receive Date: 20240410
  Receipt Date: 20240410
  Transmission Date: 20240715
  Serious: Yes (Other)
  Sender: FDA-Public Use
  Company Number: None

PATIENT
  Age: 83 Year
  Sex: Male
  Weight: 94 kg

DRUGS (28)
  1. CAPECITABINE [Suspect]
     Active Substance: CAPECITABINE
     Indication: Colorectal cancer
     Dosage: 1000-2000 MG
     Dates: start: 20150323, end: 20160517
  2. BEVACIZUMAB [Suspect]
     Active Substance: BEVACIZUMAB
     Indication: Colorectal cancer metastatic
     Dosage: 1 MG, QW3 DATE OF LAST DOSE PRIOR TO SAE: 28/-OCT-2014
     Dates: start: 20141016, end: 20160503
  3. MUCOFALK [Concomitant]
     Indication: Diarrhoea
     Dosage: 2 DF, QD
     Dates: start: 20150827
  4. PANTOZOL [Concomitant]
     Active Substance: PANTOPRAZOLE SODIUM
     Dates: start: 20140826
  5. MCP [Concomitant]
     Active Substance: METOCLOPRAMIDE HYDROCHLORIDE
     Indication: Vomiting
     Dosage: 3 DF, QD
     Dates: start: 20141110
  6. FENTANYL [Concomitant]
     Active Substance: FENTANYL\FENTANYL CITRATE
     Indication: Pain in extremity
     Dosage: 50 UG, TID
     Dates: start: 20160525
  7. UNACID [Concomitant]
     Indication: Infection
     Dosage: 1500 MG, QD
     Dates: start: 20150217, end: 20150301
  8. OXALIPLATIN [Concomitant]
     Active Substance: OXALIPLATIN
     Indication: Colorectal cancer
     Dosage: 1 UNK, QW2 (105-178 MG)
     Dates: start: 20141016
  9. LEVOFLOXACIN [Concomitant]
     Active Substance: LEVOFLOXACIN
     Indication: Nasopharyngitis
     Dosage: 500 MG, QD
     Dates: start: 20160308, end: 20160312
  10. METOPROLOL [Concomitant]
     Active Substance: METOPROLOL
     Indication: Hypertension
     Dosage: 190 MG, QD
  11. NOVALGIN [Concomitant]
     Indication: Pain
     Dates: start: 20141016
  12. AZOPT [Concomitant]
     Active Substance: BRINZOLAMIDE
     Indication: Glaucoma
  13. LEUCOVORIN [Concomitant]
     Active Substance: LEUCOVORIN\LEUCOVORIN CALCIUM
     Indication: Colorectal cancer
     Dosage: 400 MG, BID
     Dates: start: 20141016
  14. CERTOPARIN SODIUM [Concomitant]
     Active Substance: CERTOPARIN SODIUM
     Indication: Thrombosis prophylaxis
     Dosage: 3000 IU, QD
     Dates: start: 20140826, end: 20141007
  15. AMLODIPINE [Concomitant]
     Active Substance: AMLODIPINE BESYLATE
     Indication: Hypertension
     Dosage: 10 MG, QD
  16. DEXAMETHASONE [Concomitant]
     Active Substance: DEXAMETHASONE
     Indication: Vomiting
     Dosage: 8 MG, CYCLIC (DAY 1 OF CYCLE)
     Dates: start: 20150818, end: 20150915
  17. CIPROFLOXACIN [Concomitant]
     Active Substance: CIPROFLOXACIN
     Indication: Erysipelas
     Dates: start: 20150420, end: 20150428
  18. ZOPICLONE [Concomitant]
     Active Substance: ZOPICLONE
     Indication: Sleep disorder
     Dates: end: 20150216
  19. GRANISETRON [Concomitant]
     Active Substance: GRANISETRON
     Indication: Vomiting
     Dosage: DAY 1 OF CYCLE
     Dates: start: 20150818, end: 20150915
  20. LEVOTHYROXINE SODIUM [Concomitant]
     Active Substance: LEVOTHYROXINE SODIUM
     Indication: Hypothyroidism
  21. LISINOPRIL [Concomitant]
     Active Substance: LISINOPRIL
     Indication: Hypertension
     Dosage: 40 MG, QD
  22. ASPIRIN [Concomitant]
     Active Substance: ASPIRIN
     Indication: Coronary artery disease
  23. TORSEMIDE [Concomitant]
     Active Substance: TORSEMIDE
     Indication: Nephropathy
     Dosage: 20 MG, QD
  24. FLUOROURACIL [Concomitant]
     Active Substance: FLUOROURACIL
     Dosage: 800 MG, UNK
     Dates: start: 20141016
  25. SIMVASTATIN [Concomitant]
     Active Substance: SIMVASTATIN
     Indication: Coronary artery disease
  26. FENTANYL [Concomitant]
     Active Substance: FENTANYL\FENTANYL CITRATE
     Dosage: ONCE IN 3 DAYS
     Dates: start: 20160105, end: 20160523
  27. FENTANYL [Concomitant]
     Active Substance: FENTANYL\FENTANYL CITRATE
     Indication: Pain in extremity
     Dosage: 12 UG, TID
     Dates: start: 20150216, end: 20160323
  28. FLUOROURACIL [Concomitant]
     Active Substance: FLUOROURACIL
     Indication: Colorectal cancer
     Dates: start: 20141016

REACTIONS (13)
  - Paronychia [Recovered/Resolved]
  - Diabetic foot [Not Recovered/Not Resolved]
  - Squamous cell carcinoma [Not Recovered/Not Resolved]
  - Pain in extremity [Recovered/Resolved]
  - Anaemia [Not Recovered/Not Resolved]
  - Nasopharyngitis [Recovered/Resolved]
  - Night sweats [Not Recovered/Not Resolved]
  - Hypoacusis [Not Recovered/Not Resolved]
  - Fatigue [Not Recovered/Not Resolved]
  - Peripheral sensory neuropathy [Not Recovered/Not Resolved]
  - Sleep disorder [Not Recovered/Not Resolved]
  - Pain [Recovered/Resolved]
  - Epistaxis [Not Recovered/Not Resolved]

NARRATIVE: CASE EVENT DATE: 20141101
